FAERS Safety Report 6936375-9 (Version None)
Quarter: 2010Q3

REPORT INFORMATION
  Report Type: 
  Country: None (occurrence: None)
  Receive Date: 20100823
  Receipt Date: 20100812
  Transmission Date: 20110219
  Serious: Yes (Death)
  Sender: FDA-Public Use
  Company Number: GXKR2010DE09041

PATIENT
  Age: 23 Year
  Sex: Female

DRUGS (7)
  1. CYCLOSPORINE [Suspect]
     Indication: ACUTE GRAFT VERSUS HOST DISEASE
     Route: 065
  2. METHYLPREDNISOLONE 4MG TAB [Suspect]
     Indication: ACUTE GRAFT VERSUS HOST DISEASE
     Route: 065
  3. MYCOPHENOLATE MOFETIL [Suspect]
     Indication: IMMUNOSUPPRESSION
  4. CASPOFUNGIN [Suspect]
     Indication: ASPERGILLOSIS
     Dosage: UNK
     Route: 065
  5. VORICONAZOLE [Concomitant]
     Route: 065
  6. IMIPENEM [Concomitant]
  7. TEICOPLANIN [Concomitant]

REACTIONS (10)
  - ANURIA [None]
  - CIRCULATORY COLLAPSE [None]
  - FLANK PAIN [None]
  - KIDNEY ENLARGEMENT [None]
  - LUNG INFILTRATION [None]
  - MULTI-ORGAN FAILURE [None]
  - NEPHRECTOMY [None]
  - PYREXIA [None]
  - RESPIRATORY FAILURE [None]
  - ZYGOMYCOSIS [None]
